FAERS Safety Report 8806381 (Version 1)
Quarter: 2012Q4

REPORT INFORMATION
  Report Type: 
  Country: US (occurrence: US)
  Receive Date: 20120925
  Receipt Date: 20120925
  Transmission Date: 20130627
  Serious: No
  Sender: FDA-Public Use
  Company Number: US-JNJFOC-20120900155

PATIENT
  Age: 20 Year
  Sex: Female

DRUGS (3)
  1. INVEGA SUSTENNA [Suspect]
     Indication: SCHIZOAFFECTIVE DISORDER
     Route: 030
     Dates: start: 20120828
  2. SEROQUEL [Concomitant]
     Route: 048
  3. HALDOL [Concomitant]
     Route: 048

REACTIONS (1)
  - Incorrect dose administered [Unknown]
